FAERS Safety Report 24542599 (Version 2)
Quarter: 2024Q4

REPORT INFORMATION
  Report Type: Spontaneous
  Country: GB (occurrence: GB)
  Receive Date: 20241024
  Receipt Date: 20241201
  Transmission Date: 20250115
  Serious: Yes (Life-Threatening, Hospitalization, Disabling, Other)
  Sender: TEVA
  Company Number: None

PATIENT
  Age: 31 Year
  Sex: Female
  Weight: 64 kg

DRUGS (117)
  1. CLONAZEPAM [Suspect]
     Active Substance: CLONAZEPAM
     Indication: Sedation
     Dosage: DOSAGE TEXT: UNSURE,DURATION 45DAYS
     Route: 048
     Dates: start: 20110224, end: 20110410
  2. MIRTAZAPINE [Suspect]
     Active Substance: MIRTAZAPINE
     Indication: Psychotic disorder
     Dosage: DOSAGE TEXT: 15 MG, QD (30MG IN THE DAY AND 15MG AT NIGHT),DURATION 47DAYS
     Route: 065
     Dates: start: 20110224, end: 20110506
  3. MIRTAZAPINE [Suspect]
     Active Substance: MIRTAZAPINE
     Indication: Psychotic disorder
     Dosage: 30 MG IN THE DAY AND 15 MG AT NIGHT 30 MG, ONCE PER DAY
     Route: 048
     Dates: start: 20101007, end: 20101012
  4. MIRTAZAPINE [Suspect]
     Active Substance: MIRTAZAPINE
     Indication: Psychotic disorder
     Dosage: UNK, UNK
     Route: 065
     Dates: start: 20100923, end: 20101108
  5. MIRTAZAPINE [Suspect]
     Active Substance: MIRTAZAPINE
     Indication: Psychotic disorder
     Dosage: 30 MG, ONCE PER DAY
     Route: 048
  6. MIRTAZAPINE [Suspect]
     Active Substance: MIRTAZAPINE
     Indication: Psychotic disorder
     Dosage: UNK (30MG IN THE DAY AND 15MG AT NIGHT)
     Route: 065
  7. MIRTAZAPINE [Suspect]
     Active Substance: MIRTAZAPINE
     Indication: Psychotic disorder
     Dosage: 30 MILLIGRAM, DAILY
     Route: 048
     Dates: start: 20100923, end: 20101108
  8. MIRTAZAPINE [Suspect]
     Active Substance: MIRTAZAPINE
     Indication: Psychotic disorder
     Dosage: 30MG IN THE DAY AND 15MG AT NIGHT 30 MG, ONCE PER DAY
     Route: 065
     Dates: start: 20110224, end: 20110506
  9. MIRTAZAPINE [Suspect]
     Active Substance: MIRTAZAPINE
     Indication: Psychotic disorder
     Dosage: 15 MG, QD (30 MG IN THE DAY AND 15 MG AT NIGHT, TABLET) 15 MG, 2 TIMES PER DAY
     Route: 048
     Dates: start: 20101007, end: 20101012
  10. MIRTAZAPINE [Suspect]
     Active Substance: MIRTAZAPINE
     Indication: Psychotic disorder
     Dosage: 15 MG, UNK (30MG IN THE DAY AND 15MG AT NIGHT)
     Route: 065
     Dates: start: 20110224, end: 20110506
  11. MIRTAZAPINE [Suspect]
     Active Substance: MIRTAZAPINE
     Indication: Psychotic disorder
     Dosage: UNSURE
     Route: 048
     Dates: start: 20100923, end: 20101108
  12. DIAZEPAM [Suspect]
     Active Substance: DIAZEPAM
     Indication: Depression
     Dosage: 20 MG, QD 5 MILLIGRAM, QID (5 MG QDS AND NOW ON 2-2-4 MG)
     Route: 048
     Dates: start: 20110725, end: 20110725
  13. DIAZEPAM [Suspect]
     Active Substance: DIAZEPAM
     Indication: Depression
     Dosage: UNK, 8 MG, UNK (EVERY 24 HOURS)
     Route: 048
     Dates: start: 20110725
  14. DIAZEPAM [Suspect]
     Active Substance: DIAZEPAM
     Indication: Depression
     Dosage: UNK
     Route: 065
     Dates: start: 20110725
  15. DIAZEPAM [Suspect]
     Active Substance: DIAZEPAM
     Indication: Depression
     Dosage: 5 MG QDS AND NOW ON 2-2-4 MG
     Route: 048
     Dates: start: 20110725
  16. DIAZEPAM [Suspect]
     Active Substance: DIAZEPAM
     Indication: Depression
     Dosage: 5 MG, 4 TIMES PER DAY (20 MG, QD 5 MILLIGRAM, QID (5 MG QDS AND NOW)
     Route: 065
     Dates: start: 20110725
  17. DIAZEPAM [Suspect]
     Active Substance: DIAZEPAM
     Indication: Depression
     Dosage: 5 MG, 4 TIMES PER DAY (20 MG, QD 5 MILLIGRAM, QID (5 MG QDS AND NOW)
     Route: 048
     Dates: start: 20110725
  18. DIAZEPAM [Suspect]
     Active Substance: DIAZEPAM
     Indication: Depression
     Dosage: 8 MG, UNK (EVERY 24 HOURS)
     Route: 048
  19. DIAZEPAM [Suspect]
     Active Substance: DIAZEPAM
     Indication: Depression
     Dosage: UNK, UNK
     Route: 065
     Dates: start: 20110725
  20. DIAZEPAM [Suspect]
     Active Substance: DIAZEPAM
     Indication: Depression
     Dosage: UNK
     Route: 065
  21. DIAZEPAM [Suspect]
     Active Substance: DIAZEPAM
     Indication: Depression
     Dosage: 5 MG QDS AND NOW ON 2-2-4 MG
     Route: 048
     Dates: start: 20110725
  22. DIAZEPAM [Suspect]
     Active Substance: DIAZEPAM
     Indication: Depression
     Dosage: 8 MILLIGRAM, DAILY
     Route: 048
     Dates: start: 20110725
  23. DIAZEPAM [Suspect]
     Active Substance: DIAZEPAM
     Indication: Depression
     Dosage: 5 MG, 4 TIMES PER DAY (20 MG, QD 5 MILLIGRAM, QID (5 MG QDS AND NOW)
     Route: 048
     Dates: start: 20110725
  24. PHOSPHORUS [Suspect]
     Active Substance: PHOSPHORUS
     Indication: Product used for unknown indication
     Dosage: UNK,UNK
     Route: 065
  25. PHOSPHORUS [Suspect]
     Active Substance: PHOSPHORUS
     Indication: Product used for unknown indication
     Dosage: UNK, UNK,UNK
     Route: 065
  26. PHOSPHORUS [Suspect]
     Active Substance: PHOSPHORUS
     Indication: Product used for unknown indication
     Dosage: UNK
     Route: 065
  27. OMEPRAZOLE [Suspect]
     Active Substance: OMEPRAZOLE
     Indication: Dyspepsia
     Dosage: 20 MG, ONCE PER DAY (Q24H)
     Route: 048
     Dates: start: 20110525
  28. OMEPRAZOLE [Suspect]
     Active Substance: OMEPRAZOLE
     Indication: Dyspepsia
     Dosage: 20 MG, ONCE PER DAY
     Route: 048
  29. PROCYCLIDINE [Interacting]
     Active Substance: PROCYCLIDINE
     Indication: Extrapyramidal disorder
     Dosage: 15 MG, QD, 15 MG, ONCE PER DAY (15 MG, QD, 5MG, TID)
     Route: 048
     Dates: start: 20110503, end: 20110510
  30. PROCYCLIDINE [Interacting]
     Active Substance: PROCYCLIDINE
     Indication: Extrapyramidal disorder
     Dosage: UNK
     Route: 048
     Dates: start: 20110503, end: 20110510
  31. PROCYCLIDINE [Interacting]
     Active Substance: PROCYCLIDINE
     Indication: Extrapyramidal disorder
     Dosage: UNK,UNK
     Route: 065
     Dates: start: 20110415
  32. PROCYCLIDINE [Interacting]
     Active Substance: PROCYCLIDINE
     Indication: Extrapyramidal disorder
     Dosage: UNK
     Route: 048
     Dates: start: 20110324, end: 20110506
  33. PROCYCLIDINE [Interacting]
     Active Substance: PROCYCLIDINE
     Indication: Extrapyramidal disorder
     Route: 048
     Dates: start: 1995, end: 1995
  34. PROCYCLIDINE [Interacting]
     Active Substance: PROCYCLIDINE
     Indication: Extrapyramidal disorder
     Dosage: IN 1ST TRIMESTER
     Route: 048
     Dates: start: 20110415
  35. PROCYCLIDINE [Interacting]
     Active Substance: PROCYCLIDINE
     Indication: Extrapyramidal disorder
     Route: 048
     Dates: start: 20110503, end: 20110510
  36. PROCYCLIDINE [Interacting]
     Active Substance: PROCYCLIDINE
     Indication: Extrapyramidal disorder
     Dosage: UNK
     Route: 048
     Dates: start: 1995, end: 1996
  37. PROCYCLIDINE [Interacting]
     Active Substance: PROCYCLIDINE
     Indication: Extrapyramidal disorder
     Dosage: 5 MG, TID
     Route: 048
     Dates: start: 20110503, end: 20110510
  38. PROCYCLIDINE [Interacting]
     Active Substance: PROCYCLIDINE
     Indication: Extrapyramidal disorder
     Route: 048
     Dates: start: 1995, end: 1996
  39. PROCYCLIDINE [Interacting]
     Active Substance: PROCYCLIDINE
     Indication: Extrapyramidal disorder
     Dosage: 20 MG, QD, IN 1ST TRIMESTER
     Route: 065
     Dates: start: 20110415
  40. PROCYCLIDINE [Interacting]
     Active Substance: PROCYCLIDINE
     Indication: Extrapyramidal disorder
     Dosage: TIME INTERVAL: 0.33333333 DAYS
     Route: 048
     Dates: start: 20110503, end: 20110510
  41. PROCYCLIDINE [Interacting]
     Active Substance: PROCYCLIDINE
     Indication: Extrapyramidal disorder
     Dosage: UNK
     Route: 048
     Dates: end: 1995
  42. PROCYCLIDINE [Interacting]
     Active Substance: PROCYCLIDINE
     Indication: Extrapyramidal disorder
     Route: 048
     Dates: start: 20110324, end: 20110506
  43. LORAZEPAM [Suspect]
     Active Substance: LORAZEPAM
     Indication: Sedation
     Dosage: 1 MG, 4 TIMES PER DAY
     Route: 048
     Dates: start: 20110224, end: 20110410
  44. LORAZEPAM [Suspect]
     Active Substance: LORAZEPAM
     Indication: Sedation
     Dosage: UNK, DAILY
     Route: 048
     Dates: start: 20110202, end: 20110410
  45. LORAZEPAM [Suspect]
     Active Substance: LORAZEPAM
     Indication: Sedation
     Dosage: UNK
     Route: 048
     Dates: start: 20110523, end: 20110627
  46. LORAZEPAM [Suspect]
     Active Substance: LORAZEPAM
     Indication: Sedation
     Dosage: UNK
     Route: 048
     Dates: start: 20110202, end: 20110410
  47. LORAZEPAM [Suspect]
     Active Substance: LORAZEPAM
     Indication: Sedation
     Dosage: 4 MG QID
     Route: 048
     Dates: start: 20110224, end: 20110410
  48. LORAZEPAM [Suspect]
     Active Substance: LORAZEPAM
     Indication: Sedation
     Dosage: 1 MILLIGRAM
     Route: 048
     Dates: start: 20110224, end: 20110410
  49. LORAZEPAM [Suspect]
     Active Substance: LORAZEPAM
     Indication: Sedation
     Dosage: 4 MG, ONCE PER DAY
     Route: 048
     Dates: start: 20110523, end: 20110627
  50. LORAZEPAM [Suspect]
     Active Substance: LORAZEPAM
     Indication: Sedation
     Dosage: 1 MG, UNK 1 MG, ONCE PER DAY
     Route: 048
     Dates: start: 20110725
  51. LORAZEPAM [Suspect]
     Active Substance: LORAZEPAM
     Indication: Sedation
     Dosage: 1 MG, UNK
     Route: 048
     Dates: start: 20110523, end: 20110627
  52. LORAZEPAM [Suspect]
     Active Substance: LORAZEPAM
     Indication: Sedation
     Dosage: UNK
     Route: 048
     Dates: start: 20110224, end: 20110410
  53. LORAZEPAM [Suspect]
     Active Substance: LORAZEPAM
     Indication: Sedation
     Dosage: 4 UNK
     Route: 048
     Dates: start: 20110224, end: 20110404
  54. LORAZEPAM [Suspect]
     Active Substance: LORAZEPAM
     Indication: Sedation
     Dosage: 1 MG, UNK
     Route: 048
     Dates: start: 20110523, end: 20110627
  55. LORAZEPAM [Suspect]
     Active Substance: LORAZEPAM
     Indication: Sedation
     Dosage: 4 MILLIGRAM
     Route: 048
     Dates: start: 20110224, end: 20110410
  56. TRAMADOL [Suspect]
     Active Substance: TRAMADOL
     Indication: Back pain
     Dosage: UNSPECIFIED, 50-100, 4 CYCLICAL, UNK, UNK (4 CYCLICAL, QD), UNK, UNK (4 OT, QD)], UNK, UNK (UNSPECIF
     Route: 048
     Dates: start: 20080722
  57. TRAMADOL [Suspect]
     Active Substance: TRAMADOL
     Indication: Back pain
     Dosage: 20 MG, UNK 20 MG, UNK (20 MG, UNK)
     Route: 065
     Dates: start: 20110725
  58. TRAMADOL [Suspect]
     Active Substance: TRAMADOL
     Indication: Back pain
     Dosage: DISCONTINUED AFTER 4 OR 5 DAYS UNK, UNK 4 MG, ONCE PER DAY( (4 CYCLICAL, QD 50-100 MG QD) 4 MG, O
     Route: 065
     Dates: start: 20081201, end: 20101210
  59. TRAMADOL [Suspect]
     Active Substance: TRAMADOL
     Indication: Back pain
     Dosage: 2008/2009, DRUG START/DRUG WITHDRAWN UNK, UNK UNK, UNK (UNK, UNK (4 UNK, QD)) (4 CYCLICAL QD) (UNK
     Route: 065
     Dates: start: 2008, end: 2009
  60. TRAMADOL [Suspect]
     Active Substance: TRAMADOL
     Indication: Back pain
     Dosage: DISCONTINUED AFTER 4 OR 5 DAYS UNK, UNK 4 MG, ONCE PER DAY( (4 CYCLICAL, QD 50-100 MG QD) 4 MG, O
     Route: 048
     Dates: start: 20081201, end: 20101210
  61. TRAMADOL [Suspect]
     Active Substance: TRAMADOL
     Indication: Back pain
     Dosage: 1 DOSAGE FORM, UNK
     Route: 065
     Dates: start: 20110725
  62. TRAMADOL [Suspect]
     Active Substance: TRAMADOL
     Indication: Back pain
     Dosage: UNK
     Route: 048
     Dates: start: 20110725
  63. TRAMADOL [Suspect]
     Active Substance: TRAMADOL
     Indication: Back pain
     Dosage: 4 DOSAGE FORM, UNK
     Route: 048
  64. TRAMADOL [Suspect]
     Active Substance: TRAMADOL
     Indication: Back pain
     Dosage: UNK
     Route: 044
     Dates: start: 1995, end: 1996
  65. PAROXETINE [Suspect]
     Active Substance: PAROXETINE
     Indication: Depression
     Dosage: 60 MG, QD (20 MG 3 TIMES PER DAY), 60 MG,UNK
     Route: 048
     Dates: start: 1997, end: 201105
  66. PAROXETINE [Suspect]
     Active Substance: PAROXETINE
     Indication: Depression
     Dosage: UNK
     Route: 048
     Dates: start: 1999
  67. PAROXETINE [Suspect]
     Active Substance: PAROXETINE
     Indication: Depression
     Dosage: UNKNOWN,UNKNOWN,UNKNOWN,UNKNOWN,UNK UNK, UNK
     Route: 048
     Dates: start: 1996, end: 201105
  68. PAROXETINE [Suspect]
     Active Substance: PAROXETINE
     Indication: Depression
     Dosage: UNK
     Route: 065
     Dates: start: 201012
  69. PAROXETINE [Suspect]
     Active Substance: PAROXETINE
     Indication: Depression
     Dosage: UNK
     Route: 048
     Dates: start: 1996, end: 201105
  70. PAROXETINE [Suspect]
     Active Substance: PAROXETINE
     Indication: Depression
     Dosage: 40 MG, ONCE PER DAY
     Route: 048
     Dates: start: 19990801, end: 20110706
  71. PAROXETINE [Suspect]
     Active Substance: PAROXETINE
     Indication: Depression
     Dosage: TIME INTERVAL: 0.33333333 DAYS
     Route: 048
     Dates: start: 1997, end: 201105
  72. PAROXETINE [Suspect]
     Active Substance: PAROXETINE
     Indication: Depression
     Dosage: UNK
     Route: 065
     Dates: start: 20081201, end: 20101210
  73. PAROXETINE [Suspect]
     Active Substance: PAROXETINE
     Indication: Depression
     Dosage: UNK
     Route: 048
     Dates: start: 19990801, end: 20110706
  74. PAROXETINE [Suspect]
     Active Substance: PAROXETINE
     Indication: Depression
     Dosage: UNK, UNK
     Route: 065
  75. PAROXETINE [Suspect]
     Active Substance: PAROXETINE
     Indication: Depression
     Dosage: 20 MG THREE TIMES A DAY (PHARMACEUTICAL DOSAGE FORM: TABLET) 60 MG, ONCE PER DAY
     Route: 048
     Dates: start: 19990801, end: 201105
  76. PAROXETINE [Suspect]
     Active Substance: PAROXETINE
     Indication: Depression
     Dosage: (20 MG THREE TIMES A DAY) 40 MG,UNK
     Route: 048
     Dates: start: 201105, end: 20110706
  77. PAROXETINE [Suspect]
     Active Substance: PAROXETINE
     Indication: Depression
     Dosage: 60 MG, ONCE PER DAY
     Route: 048
     Dates: start: 1997, end: 201105
  78. PAROXETINE [Suspect]
     Active Substance: PAROXETINE
     Indication: Depression
     Dosage: UNK
     Route: 048
     Dates: start: 1996, end: 201105
  79. PAROXETINE [Suspect]
     Active Substance: PAROXETINE
     Indication: Depression
     Dosage: TIME INTERVAL: 0.33333333 DAYS
     Route: 048
     Dates: start: 199908, end: 201105
  80. PAROXETINE [Suspect]
     Active Substance: PAROXETINE
     Indication: Depression
     Dosage: 20 MG, 3 TIMES PER DAY
     Route: 048
     Dates: start: 199908, end: 201105
  81. PAROXETINE [Suspect]
     Active Substance: PAROXETINE
     Indication: Depression
     Dosage: UNK, UNK
     Route: 065
     Dates: start: 201012
  82. CODEINE [Interacting]
     Active Substance: CODEINE
     Indication: Product used for unknown indication
     Dosage: 24 - EVERY HOUR; ;
     Route: 048
     Dates: start: 20110715, end: 20110723
  83. CODEINE [Interacting]
     Active Substance: CODEINE
     Indication: Product used for unknown indication
     Dosage: UNK, UNK, UNK
     Route: 048
     Dates: start: 20110224, end: 20110410
  84. CODEINE [Interacting]
     Active Substance: CODEINE
     Indication: Product used for unknown indication
     Dosage: 15-30 MG
     Route: 048
     Dates: start: 20110615, end: 20110623
  85. CODEINE [Interacting]
     Active Substance: CODEINE
     Indication: Product used for unknown indication
     Route: 048
     Dates: start: 20110615, end: 20110723
  86. CODEINE [Interacting]
     Active Substance: CODEINE
     Indication: Product used for unknown indication
     Dosage: UNK
     Route: 048
     Dates: start: 20110224, end: 20110410
  87. CODEINE [Interacting]
     Active Substance: CODEINE
     Indication: Product used for unknown indication
     Route: 048
     Dates: start: 2008, end: 2008
  88. CODEINE [Interacting]
     Active Substance: CODEINE
     Indication: Product used for unknown indication
     Dosage: UNK
     Route: 048
     Dates: start: 2008, end: 2008
  89. CODEINE [Interacting]
     Active Substance: CODEINE
     Indication: Product used for unknown indication
     Dosage: UNK
     Route: 048
     Dates: start: 2002, end: 2002
  90. CODEINE [Interacting]
     Active Substance: CODEINE
     Indication: Product used for unknown indication
     Dosage: 15-30 MG/ 24 - EVERY HOUR UNK, UNK (EVERY 24 HOURS) (15-30 MG)
     Route: 048
     Dates: start: 20110615, end: 20110723
  91. QUETIAPINE [Suspect]
     Active Substance: QUETIAPINE
     Indication: Psychotic disorder
     Dosage: UNK,  UNK
     Route: 048
     Dates: start: 19990801, end: 20110706
  92. QUETIAPINE [Suspect]
     Active Substance: QUETIAPINE
     Indication: Psychotic disorder
     Dosage: UNK, UNK, QUETIAPINE (NON-MAH)
     Route: 048
     Dates: start: 19990801, end: 20110706
  93. QUETIAPINE [Suspect]
     Active Substance: QUETIAPINE
     Indication: Psychotic disorder
     Dosage: FILM COATED 300 MG,UNK, QUETIAPINE (NON-MAH)
     Route: 048
     Dates: start: 20110224, end: 20110506
  94. DOMPERIDONE [Suspect]
     Active Substance: DOMPERIDONE
     Indication: Product used for unknown indication
     Dosage: UNK
     Route: 065
  95. DOMPERIDONE [Suspect]
     Active Substance: DOMPERIDONE
     Indication: Product used for unknown indication
     Dosage: UNK,  UNK
     Route: 048
     Dates: start: 20100923, end: 20101108
  96. DOMPERIDONE [Suspect]
     Active Substance: DOMPERIDONE
     Indication: Product used for unknown indication
     Dosage: UNK, UNK
     Route: 065
  97. AMITRIPTYLINE [Suspect]
     Active Substance: AMITRIPTYLINE
     Indication: Neuralgia
     Dosage: 25 MG AT NIGHT
     Route: 065
     Dates: start: 20110810
  98. PAROXETINE HYDROCHLORIDE [Suspect]
     Active Substance: PAROXETINE HYDROCHLORIDE
     Indication: Depression
     Dosage: INTERRUPTED
     Route: 048
     Dates: start: 200812, end: 201012
  99. PAROXETINE HYDROCHLORIDE [Suspect]
     Active Substance: PAROXETINE HYDROCHLORIDE
     Indication: Depression
     Dosage: TIME INTERVAL: 0.33333333 DAYS
     Route: 048
     Dates: start: 2011, end: 201105
  100. PAROXETINE HYDROCHLORIDE [Suspect]
     Active Substance: PAROXETINE HYDROCHLORIDE
     Indication: Depression
     Dosage: UNK
     Route: 048
     Dates: start: 201012
  101. PAROXETINE HYDROCHLORIDE [Suspect]
     Active Substance: PAROXETINE HYDROCHLORIDE
     Indication: Depression
     Route: 065
     Dates: start: 1999
  102. PAROXETINE HYDROCHLORIDE [Suspect]
     Active Substance: PAROXETINE HYDROCHLORIDE
     Indication: Depression
     Dosage: INTERRUPTED
     Route: 048
     Dates: start: 1997
  103. PAROXETINE HYDROCHLORIDE [Suspect]
     Active Substance: PAROXETINE HYDROCHLORIDE
     Indication: Depression
     Dosage: TIME INTERVAL: 0.33333333 DAYS: 20 MG, 3 TIMES PER DAY (NTERRUPTED)
     Route: 048
     Dates: start: 19990801, end: 201105
  104. PAROXETINE HYDROCHLORIDE [Suspect]
     Active Substance: PAROXETINE HYDROCHLORIDE
     Indication: Depression
     Dosage: 20 MG BID
     Route: 048
     Dates: start: 2011, end: 20110706
  105. PAROXETINE HYDROCHLORIDE [Suspect]
     Active Substance: PAROXETINE HYDROCHLORIDE
     Indication: Depression
     Dosage: UNKNOWN,UNKNOWN,UNKNOWN,UNKNOWN,UNK
     Route: 048
     Dates: start: 200812, end: 20101210
  106. PAROXETINE HYDROCHLORIDE [Suspect]
     Active Substance: PAROXETINE HYDROCHLORIDE
     Indication: Depression
     Dosage: 40 MG, ONCE PER DAY
     Route: 048
  107. PAROXETINE HYDROCHLORIDE [Suspect]
     Active Substance: PAROXETINE HYDROCHLORIDE
     Indication: Depression
     Dosage: UNK, UNK
     Route: 048
     Dates: start: 201012
  108. PAROXETINE HYDROCHLORIDE [Suspect]
     Active Substance: PAROXETINE HYDROCHLORIDE
     Indication: Depression
     Dosage: 1 DOSAGE FORM, ONCE PER DAY
     Route: 048
     Dates: start: 200812, end: 20101210
  109. PAROXETINE HYDROCHLORIDE [Suspect]
     Active Substance: PAROXETINE HYDROCHLORIDE
     Indication: Depression
     Dosage: 180 MG, TID (60 MG TID)
     Route: 065
     Dates: start: 19990801, end: 201105
  110. PAROXETINE HYDROCHLORIDE [Suspect]
     Active Substance: PAROXETINE HYDROCHLORIDE
     Indication: Depression
     Dosage: 20 MG, TID 60 MG, ONCE PER DAY (20 MG, THREE TIMES PER DAY)
     Route: 048
     Dates: start: 19990801, end: 201105
  111. PAROXETINE HYDROCHLORIDE [Suspect]
     Active Substance: PAROXETINE HYDROCHLORIDE
     Indication: Depression
     Dosage: 20 MILLIGRAM, TID 60 MG, ONCE PER DAY,UNINTERRUPTED
     Route: 048
     Dates: start: 1997, end: 201105
  112. PAROXETINE HYDROCHLORIDE [Suspect]
     Active Substance: PAROXETINE HYDROCHLORIDE
     Indication: Depression
     Dosage: 60 MG, ONCE PER DAY (20 MG, THREE TIMES PER DAY)
     Route: 048
     Dates: start: 19990801, end: 201105
  113. PAROXETINE HYDROCHLORIDE [Suspect]
     Active Substance: PAROXETINE HYDROCHLORIDE
     Indication: Depression
     Dosage: TIME INTERVAL: 0.33333333 DAYS
     Route: 065
     Dates: start: 201105, end: 20110706
  114. PAROXETINE HYDROCHLORIDE [Suspect]
     Active Substance: PAROXETINE HYDROCHLORIDE
     Indication: Depression
     Dosage: UNK
     Route: 048
     Dates: start: 1999, end: 201105
  115. PAROXETINE HYDROCHLORIDE [Suspect]
     Active Substance: PAROXETINE HYDROCHLORIDE
     Indication: Depression
     Dosage: 40 MG, QD/ INTERRUPTED 40 MG,UNK (20 MG (2 PER DAY)) UNK, UNK (INTERRUPTED)
     Route: 048
     Dates: start: 201105, end: 20110706
  116. PAROXETINE HYDROCHLORIDE [Suspect]
     Active Substance: PAROXETINE HYDROCHLORIDE
     Indication: Depression
     Dosage: 20 MG, 3 TIMES PER DAY
     Route: 048
     Dates: end: 201105
  117. PAROXETINE HYDROCHLORIDE [Suspect]
     Active Substance: PAROXETINE HYDROCHLORIDE
     Indication: Depression
     Dosage: INTERRUPTED 20 MG, UNK (INTERRUPTED)
     Route: 048
     Dates: start: 1997

REACTIONS (132)
  - Cyanosis [Unknown]
  - Muscle spasms [Not Recovered/Not Resolved]
  - Diarrhoea [Unknown]
  - Pallor [Unknown]
  - Drug ineffective [Unknown]
  - Suicidal ideation [Not Recovered/Not Resolved]
  - Tachycardia [Unknown]
  - Aphasia [Not Recovered/Not Resolved]
  - Contusion [Unknown]
  - Fatigue [Not Recovered/Not Resolved]
  - Pruritus [Unknown]
  - Confusional state [Not Recovered/Not Resolved]
  - Swelling face [Unknown]
  - Serotonin syndrome [Not Recovered/Not Resolved]
  - Mania [Unknown]
  - Paralysis [Unknown]
  - Illness [Unknown]
  - Mood swings [Unknown]
  - Nightmare [Unknown]
  - Neuroleptic malignant syndrome [Unknown]
  - Headache [Unknown]
  - Pyrexia [Unknown]
  - Paraesthesia [Unknown]
  - Dyskinesia [Unknown]
  - Restless legs syndrome [Not Recovered/Not Resolved]
  - Incontinence [Not Recovered/Not Resolved]
  - Skin discolouration [Not Recovered/Not Resolved]
  - Drug withdrawal syndrome [Unknown]
  - Dystonia [Unknown]
  - Somnolence [Unknown]
  - Tinnitus [Unknown]
  - Mydriasis [Unknown]
  - Psychotic disorder [Recovered/Resolved]
  - Parosmia [Unknown]
  - Hallucinations, mixed [Unknown]
  - Gastric pH decreased [Unknown]
  - Dyspnoea [Unknown]
  - Muscle rigidity [Unknown]
  - Cogwheel rigidity [Unknown]
  - Feeling of body temperature change [Unknown]
  - Exposure during pregnancy [Unknown]
  - Tremor [Not Recovered/Not Resolved]
  - Drug interaction [Unknown]
  - Sleep disorder [Unknown]
  - Dizziness [Unknown]
  - Agitation [Unknown]
  - Drooling [Unknown]
  - Contusion [Unknown]
  - Premature labour [Unknown]
  - Sensory loss [Unknown]
  - Drug interaction [Unknown]
  - Swollen tongue [Unknown]
  - Illness [Unknown]
  - Seizure [Unknown]
  - Contusion [Not Recovered/Not Resolved]
  - Disturbance in attention [Unknown]
  - Eye pain [Unknown]
  - Balance disorder [Unknown]
  - Fatigue [Unknown]
  - Urinary retention [Unknown]
  - Pallor [Unknown]
  - Menstrual disorder [Unknown]
  - Dissociation [Not Recovered/Not Resolved]
  - Depersonalisation/derealisation disorder [Not Recovered/Not Resolved]
  - Muscle rigidity [Unknown]
  - Muscle disorder [Unknown]
  - Vision blurred [Unknown]
  - Drug ineffective [Not Recovered/Not Resolved]
  - Delirium [Unknown]
  - H1N1 influenza [Unknown]
  - Musculoskeletal stiffness [Unknown]
  - Muscle spasms [Not Recovered/Not Resolved]
  - Eye pain [Unknown]
  - Feeling of despair [Unknown]
  - Paralysis [Unknown]
  - Speech disorder [Unknown]
  - Hypoaesthesia [Not Recovered/Not Resolved]
  - Schizophrenia [Unknown]
  - Contusion [Unknown]
  - Decreased appetite [Unknown]
  - Restlessness [Unknown]
  - Visual impairment [Unknown]
  - Premature labour [Unknown]
  - Therapeutic product ineffective [Unknown]
  - Musculoskeletal stiffness [Unknown]
  - Swollen tongue [Unknown]
  - Disorientation [Not Recovered/Not Resolved]
  - Exposure during pregnancy [Unknown]
  - Suicidal ideation [Not Recovered/Not Resolved]
  - Emotional disorder [Unknown]
  - Gait disturbance [Unknown]
  - Seizure [Unknown]
  - Depression [Unknown]
  - Paralysis [Unknown]
  - Hypoaesthesia oral [Unknown]
  - Off label use [Unknown]
  - Speech disorder [Unknown]
  - Restlessness [Not Recovered/Not Resolved]
  - Anxiety [Unknown]
  - Muscle spasms [Unknown]
  - Premature labour [Not Recovered/Not Resolved]
  - Asthenia [Unknown]
  - Heart rate increased [Unknown]
  - Nightmare [Unknown]
  - Schizophrenia [Unknown]
  - Dizziness [Unknown]
  - Toxicity to various agents [Unknown]
  - Musculoskeletal stiffness [Not Recovered/Not Resolved]
  - Fatigue [Unknown]
  - Nightmare [Unknown]
  - Maternal exposure during pregnancy [Unknown]
  - Muscle disorder [Unknown]
  - Hallucination [Unknown]
  - Visual impairment [Unknown]
  - Cyanosis [Unknown]
  - Vomiting [Unknown]
  - Contusion [Unknown]
  - Paraesthesia [Unknown]
  - Blood sodium decreased [Unknown]
  - Feeling jittery [Unknown]
  - Mood swings [Unknown]
  - Toxicity to various agents [Unknown]
  - Arthralgia [Unknown]
  - Premature labour [Unknown]
  - Aphasia [Not Recovered/Not Resolved]
  - Somnolence [Not Recovered/Not Resolved]
  - Derealisation [Not Recovered/Not Resolved]
  - Dystonia [Unknown]
  - Limb injury [Unknown]
  - Headache [Unknown]
  - Hyperhidrosis [Unknown]
  - Therapeutic product ineffective [Unknown]

NARRATIVE: CASE EVENT DATE: 20030101
